FAERS Safety Report 18754474 (Version 1)
Quarter: 2021Q1

REPORT INFORMATION
  Report Type: Spontaneous
  Country: US (occurrence: US)
  Receive Date: 20210119
  Receipt Date: 20210119
  Transmission Date: 20210419
  Serious: No
  Sender: FDA-Public Use
  Company Number: US-JNJFOC-20210119524

PATIENT

DRUGS (1)
  1. ROGAINE [Suspect]
     Active Substance: MINOXIDIL
     Indication: PRODUCT USED FOR UNKNOWN INDICATION
     Route: 061

REACTIONS (10)
  - Abnormal weight gain [Unknown]
  - Dizziness [Unknown]
  - Headache [Unknown]
  - Chest pain [Unknown]
  - Peripheral swelling [Unknown]
  - Alopecia [Unknown]
  - Confusional state [Unknown]
  - Hypertrichosis [Unknown]
  - Application site irritation [Unknown]
  - Heart rate increased [Unknown]
